FAERS Safety Report 19096004 (Version 5)
Quarter: 2022Q4

REPORT INFORMATION
  Report Type: Spontaneous
  Country: FR (occurrence: FR)
  Receive Date: 20210406
  Receipt Date: 20221124
  Transmission Date: 20230113
  Serious: Yes (Death)
  Sender: FDA-Public Use
  Company Number: FR-TEVA-2021-FR-1898158

PATIENT
  Age: 51 Year
  Sex: Female

DRUGS (6)
  1. PREGABALIN [Suspect]
     Active Substance: PREGABALIN
     Indication: Substance use
     Route: 065
  2. DIAZEPAM [Suspect]
     Active Substance: DIAZEPAM
     Indication: Substance use
     Route: 065
  3. QUETIAPINE [Suspect]
     Active Substance: QUETIAPINE
     Indication: Substance use
     Route: 065
  4. MORPHINE [Suspect]
     Active Substance: MORPHINE
     Indication: Substance use
     Route: 065
  5. CODEINE [Suspect]
     Active Substance: CODEINE
     Indication: Substance use
     Route: 065
  6. METHADONE [Suspect]
     Active Substance: METHADONE HYDROCHLORIDE
     Indication: Substance use
     Route: 065

REACTIONS (4)
  - Respiratory depression [Fatal]
  - Substance abuse [Fatal]
  - Asphyxia [Fatal]
  - Toxicity to various agents [Fatal]
